FAERS Safety Report 11137332 (Version 1)
Quarter: 2015Q2

REPORT INFORMATION
  Report Type: Spontaneous
  Country: US (occurrence: US)
  Receive Date: 20150526
  Receipt Date: 20150526
  Transmission Date: 20150821
  Serious: Yes (Other)
  Sender: FDA-Public Use
  Company Number: US-MYLANLABS-2014S1010205

PATIENT
  Age: 18 Year
  Sex: Female
  Weight: 51.71 kg

DRUGS (15)
  1. BUPROPION HYDROCHLORIDE. [Suspect]
     Active Substance: BUPROPION HYDROCHLORIDE
     Indication: DEPRESSION
     Dosage: 200 MG,AM
     Route: 048
     Dates: start: 20140425, end: 20140430
  2. BUPROPION HYDROCHLORIDE EXTENDED RELEASE SR [Suspect]
     Active Substance: BUPROPION HYDROCHLORIDE
     Dosage: 200 MG,AM
     Route: 048
     Dates: start: 20140425, end: 20140430
  3. B COMPLEX /00322001/ [Concomitant]
     Dosage: UNK
  4. BUPROPION HYDROCHLORIDE EXTENDED RELEASE SR [Suspect]
     Active Substance: BUPROPION HYDROCHLORIDE
     Dosage: 100 MG,QD
     Route: 048
     Dates: start: 20140422, end: 20140425
  5. BUPROPION HYDROCHLORIDE EXTENDED RELEASE SR [Suspect]
     Active Substance: BUPROPION HYDROCHLORIDE
     Dosage: 200 MG,AM
     Route: 048
     Dates: start: 20140425, end: 20140430
  6. BIOTIN [Concomitant]
     Active Substance: BIOTIN
     Dosage: 5000 ?G,UNK
     Dates: start: 20140430
  7. BUPROPION HYDROCHLORIDE EXTENDED RELEASE SR [Suspect]
     Active Substance: BUPROPION HYDROCHLORIDE
     Dosage: 100 MG,QD
     Route: 048
     Dates: start: 20140422, end: 20140425
  8. BUPROPION HYDROCHLORIDE EXTENDED RELEASE SR [Suspect]
     Active Substance: BUPROPION HYDROCHLORIDE
     Dosage: 100 MG,QD
     Route: 048
     Dates: start: 20140425, end: 20140430
  9. BUPROPION HYDROCHLORIDE EXTENDED RELEASE SR [Suspect]
     Active Substance: BUPROPION HYDROCHLORIDE
     Dosage: 100 MG,QD
     Route: 048
     Dates: start: 20140425, end: 20140430
  10. BUPROPION HYDROCHLORIDE EXTENDED RELEASE SR [Suspect]
     Active Substance: BUPROPION HYDROCHLORIDE
     Dosage: UNK
  11. BACTRIM [Concomitant]
     Active Substance: SULFAMETHOXAZOLE\TRIMETHOPRIM
     Dosage: UNK
     Dates: start: 20140430
  12. BUPROPION HYDROCHLORIDE EXTENDED RELEASE SR [Suspect]
     Active Substance: BUPROPION HYDROCHLORIDE
     Dosage: 100 MG,QD
     Route: 048
     Dates: start: 20140425, end: 20140430
  13. QUETIAPINE [Concomitant]
     Active Substance: QUETIAPINE
     Dosage: UNK UNK,HS
     Dates: start: 20140422
  14. ZOLOFT [Concomitant]
     Active Substance: SERTRALINE HYDROCHLORIDE
     Dosage: 50 MG,UNK
     Dates: start: 20140428, end: 20140430
  15. BUPROPION HYDROCHLORIDE EXTENDED RELEASE SR [Suspect]
     Active Substance: BUPROPION HYDROCHLORIDE
     Dosage: 100 MG,QD
     Route: 048
     Dates: start: 20140422, end: 20140425

REACTIONS (1)
  - Seizure [Recovered/Resolved]

NARRATIVE: CASE EVENT DATE: 20140430
